FAERS Safety Report 5991902-3 (Version None)
Quarter: 2008Q4

REPORT INFORMATION
  Report Type: 
  Country: None (occurrence: None)
  Receive Date: 20081211
  Receipt Date: 20080508
  Transmission Date: 20090506
  Serious: No
  Sender: FDA-Public Use
  Company Number: US-AMGEN-KDL278267

PATIENT
  Sex: Male

DRUGS (3)
  1. ENBREL [Suspect]
     Indication: RHEUMATOID ARTHRITIS
     Route: 058
     Dates: start: 20030101
  2. ENBREL [Suspect]
     Indication: PSORIATIC ARTHROPATHY
  3. IMURAN [Concomitant]
     Dates: start: 20080101

REACTIONS (2)
  - PAIN OF SKIN [None]
  - RASH PUSTULAR [None]
